FAERS Safety Report 7519714-X (Version None)
Quarter: 2011Q2

REPORT INFORMATION
  Report Type: 
  Country: None (occurrence: None)
  Receive Date: 20110524
  Receipt Date: 20110510
  Transmission Date: 20111010
  Serious: Yes (Disabling)
  Sender: FDA-Public Use
  Company Number: 1000020971

PATIENT
  Age: 86 Year
  Sex: Female

DRUGS (12)
  1. ZINC OXIDE (ZINC OXIDE, ICHTHAMMOL) (ZINC OXIDE, ICHTHAMMOL) [Concomitant]
  2. ADCORTYL (TRIAMCINOLONE ACETONIDE) (TRIAMCINOLONE ACETONIDE) [Concomitant]
  3. PARAFFIN (PARAFFIN) (PARAFFIN) [Concomitant]
  4. VITAMIN B (VITAMIN B COMPLEX) (VITAMIN B COMPLEX) [Concomitant]
  5. OMEPRAZOLE [Concomitant]
  6. LIQUIFILM (POLYVINYL ALCOHOL) (EYE DROPS) (POLYVINYL ALCOHOL) [Concomitant]
  7. ACETIC ACID (ACETIC ACID) (ACETIC ACID) [Concomitant]
  8. CETRABEN (LIQUID PARAFFIN, WHITE SOFT PARAFFIN) (LIQUID PARAFFIN, WHIT [Concomitant]
  9. MICONAZOLE (MICONAZOLE) (MICONAZOLE) [Concomitant]
  10. BISOPROLOL FUMARATE [Concomitant]
  11. NEBIVOLOL HCL [Suspect]
     Dosage: ORAL
     Route: 048
     Dates: start: 20110106, end: 20110203
  12. HYDROCORTISONE [Concomitant]

REACTIONS (5)
  - FIBROMYALGIA [None]
  - HEADACHE [None]
  - SLEEP DISORDER [None]
  - CONDITION AGGRAVATED [None]
  - CHEST PAIN [None]
